FAERS Safety Report 9229108 (Version 10)
Quarter: 2016Q2

REPORT INFORMATION
  Report Type: Report from Study
  Country: FR (occurrence: FR)
  Receive Date: 20130412
  Receipt Date: 20160617
  Transmission Date: 20160815
  Serious: Yes (Death, Hospitalization, Other)
  Sender: FDA-Public Use
  Company Number: FR-PFIZER INC-2013100039

PATIENT
  Age: 65 Year
  Sex: Male
  Weight: 92 kg

DRUGS (4)
  1. TEMSIROLIMUS [Suspect]
     Active Substance: TEMSIROLIMUS
     Indication: MANTLE CELL LYMPHOMA
     Dosage: 50 MG, 1X/DAY
     Dates: start: 20130109, end: 20130312
  2. RITUXIMAB [Concomitant]
     Active Substance: RITUXIMAB
     Indication: MANTLE CELL LYMPHOMA
     Dosage: UNK
     Dates: start: 20130108, end: 20130305
  3. ARACYTINE [Concomitant]
     Active Substance: CYTARABINE
     Indication: MANTLE CELL LYMPHOMA
     Dosage: HIGH DOSE
     Dates: start: 20130109, end: 20130307
  4. DEXAMETHASONE. [Concomitant]
     Active Substance: DEXAMETHASONE
     Indication: MANTLE CELL LYMPHOMA
     Dosage: UNK
     Dates: start: 20130108, end: 20130308

REACTIONS (15)
  - Staphylococcal infection [Fatal]
  - Stenotrophomonas sepsis [Fatal]
  - Neutropenia [Recovered/Resolved]
  - Thrombocytopenia [Recovered/Resolved]
  - Pulmonary mycosis [Recovered/Resolved with Sequelae]
  - Pseudomonas infection [Fatal]
  - Septic shock [Fatal]
  - Aspergillus infection [Fatal]
  - Klebsiella infection [Fatal]
  - Respiratory distress [Recovered/Resolved with Sequelae]
  - Renal failure [Fatal]
  - Quadriparesis [Fatal]
  - Diarrhoea [Recovered/Resolved]
  - Gastrointestinal haemorrhage [Fatal]
  - Melaena [Fatal]

NARRATIVE: CASE EVENT DATE: 20130317
